FAERS Safety Report 8504927-0 (Version None)
Quarter: 2012Q3

REPORT INFORMATION
  Report Type: 
  Country: None (occurrence: None)
  Receive Date: 20120712
  Receipt Date: 20120709
  Transmission Date: 20120928
  Serious: Yes (Death, Other)
  Sender: FDA-Public Use
  Company Number: PHHY2012JP055110

PATIENT
  Age: 61 Year
  Sex: Female

DRUGS (2)
  1. ZOLEDRONIC ACID [Suspect]
     Indication: METASTASES TO BONE
     Route: 041
     Dates: start: 20070201, end: 20091001
  2. ANALGESICS [Concomitant]

REACTIONS (6)
  - NEOPLASM MALIGNANT [None]
  - TOOTH LOSS [None]
  - NEOPLASM PROGRESSION [None]
  - OSTEONECROSIS OF JAW [None]
  - EXPOSED BONE IN JAW [None]
  - BACTERIAL INFECTION [None]
